FAERS Safety Report 9617806 (Version 2)
Quarter: 2013Q4

REPORT INFORMATION
  Report Type: Spontaneous
  Country: US (occurrence: US)
  Receive Date: 20131011
  Receipt Date: 20131011
  Transmission Date: 20140711
  Serious: Yes (Other)
  Sender: FDA-Public Use
  Company Number: US-GILEAD-2013-0083568

PATIENT
  Age: 50 Year
  Sex: Female

DRUGS (18)
  1. LETAIRIS [Suspect]
     Indication: PULMONARY ARTERIAL HYPERTENSION
     Dosage: 5 MG, QD
     Route: 048
     Dates: start: 20130912
  2. SILDENAFIL [Concomitant]
  3. OXYGEN [Concomitant]
  4. REVATIO [Concomitant]
  5. SIMVASTATIN [Concomitant]
  6. GABAPENTIN [Concomitant]
  7. LISINOPRIL [Concomitant]
  8. VITAMIN D                          /00107901/ [Concomitant]
  9. ATENOLOL [Concomitant]
  10. METFORMIN [Concomitant]
  11. TEMAZEPAM [Concomitant]
  12. LANTUS [Concomitant]
  13. HUMULIN [Concomitant]
  14. PROAIR HFA [Concomitant]
  15. ADVAIR DISKUS [Concomitant]
  16. OXYCODONE / ACETAMINOPHEN [Concomitant]
  17. COLACE [Concomitant]
  18. ASPIRIN (E.C.) [Concomitant]

REACTIONS (12)
  - Pain [Recovered/Resolved]
  - Urinary retention [Recovered/Resolved]
  - Pyrexia [Recovered/Resolved]
  - Unevaluable event [Recovered/Resolved]
  - Balance disorder [Recovered/Resolved]
  - Dizziness [Recovered/Resolved]
  - Headache [Recovered/Resolved]
  - Oedema peripheral [Recovered/Resolved]
  - Hot flush [Recovered/Resolved]
  - Asthenia [Recovered/Resolved]
  - Nasal congestion [Recovered/Resolved]
  - Nasopharyngitis [Recovered/Resolved]
